FAERS Safety Report 12995510 (Version 1)
Quarter: 2016Q4

REPORT INFORMATION
  Report Type: Spontaneous
  Country: NL (occurrence: NL)
  Receive Date: 20161202
  Receipt Date: 20161202
  Transmission Date: 20170207
  Serious: Yes (Other)
  Sender: FDA-Public Use
  Company Number: NL-TEVA-715942ISR

PATIENT
  Age: 9 Year
  Sex: Male

DRUGS (1)
  1. PREDNISOLONE. [Suspect]
     Active Substance: PREDNISOLONE
     Indication: DUCHENNE MUSCULAR DYSTROPHY
     Dosage: INTERMITTENT 0.75 MG/KG/DAY SINCE AGE OF 3Y (10 DAYS ON/10 DAYS OFF)
     Route: 065

REACTIONS (2)
  - Autism spectrum disorder [Recovering/Resolving]
  - Obsessive-compulsive disorder [Recovering/Resolving]
